FAERS Safety Report 8362591-8 (Version None)
Quarter: 2012Q2

REPORT INFORMATION
  Report Type: 
  Country: None (occurrence: None)
  Receive Date: 20120516
  Receipt Date: 20120515
  Transmission Date: 20120825
  Serious: Yes (Other)
  Sender: FDA-Public Use
  Company Number: US-PFIZER INC-2012118316

PATIENT
  Sex: Female
  Weight: 58.957 kg

DRUGS (2)
  1. SUTENT [Suspect]
     Indication: HEPATIC NEOPLASM
     Dosage: 50 MG, 1X/DAY
     Route: 048
     Dates: start: 20120304
  2. GLIMEPIRIDE [Concomitant]
     Indication: DIABETES MELLITUS
     Dosage: UNK

REACTIONS (1)
  - HYPERTENSION [None]
